FAERS Safety Report 17058322 (Version 2)
Quarter: 2019Q4

REPORT INFORMATION
  Report Type: Spontaneous
  Country: US (occurrence: US)
  Receive Date: 20191121
  Receipt Date: 20191216
  Transmission Date: 20200122
  Serious: Yes (Hospitalization, Other)
  Sender: FDA-Public Use
  Company Number: US-OTSUKA-2018_024572

PATIENT
  Sex: Male
  Weight: 152.1 kg

DRUGS (1)
  1. ABILIFY [Suspect]
     Active Substance: ARIPIPRAZOLE
     Indication: MAJOR DEPRESSION
     Dosage: UNK
     Route: 065
     Dates: start: 2008, end: 2010

REACTIONS (13)
  - Compulsive shopping [Not Recovered/Not Resolved]
  - Weight increased [Unknown]
  - Loss of employment [Unknown]
  - Suicidal ideation [Not Recovered/Not Resolved]
  - Divorced [Unknown]
  - Suicide attempt [Not Recovered/Not Resolved]
  - Obsessive-compulsive disorder [Not Recovered/Not Resolved]
  - Compulsive sexual behaviour [Not Recovered/Not Resolved]
  - Gambling disorder [Not Recovered/Not Resolved]
  - Mental disorder [Unknown]
  - Eating disorder [Not Recovered/Not Resolved]
  - Economic problem [Unknown]
  - Homeless [Unknown]

NARRATIVE: CASE EVENT DATE: 2008
